FAERS Safety Report 4357185-5 (Version None)
Quarter: 2004Q2

REPORT INFORMATION
  Report Type: 
  Country: None (occurrence: None)
  Receive Date: 20040511
  Receipt Date: 20040511
  Transmission Date: 20050107
  Serious: Yes (Life-Threatening, Hospitalization, Congenital Anomaly)
  Sender: FDA-Public Use
  Company Number: None

PATIENT
  Age: 83 Year
  Sex: Male
  Weight: 68 kg

DRUGS (19)
  1. COUMADIN [Suspect]
  2. TEMAZEPAM [Concomitant]
  3. ENOXAPARIN SODIUM [Concomitant]
  4. ALBUTEROL ORAL INHALER [Concomitant]
  5. CEPASTAT LOZENGES [Concomitant]
  6. GUAIFENESIN [Concomitant]
  7. HYDROCHLOROTHIAZIDE [Concomitant]
  8. IPRATROPIUM INHALER [Concomitant]
  9. OMEPRAZOLE [Concomitant]
  10. ASPIRIN [Concomitant]
  11. DONEPEZIL HCL [Concomitant]
  12. FLUOXETINE [Concomitant]
  13. HYDROCHLOROTHIAZIDE [Concomitant]
  14. OMEPRAZOLE [Concomitant]
  15. TEMAZEPAM [Concomitant]
  16. HYDROCHLOROTHIAZIDE [Concomitant]
  17. LORATADINE [Concomitant]
  18. DONEPEZIL HCL [Concomitant]
  19. FLUOXETINE [Concomitant]

REACTIONS (1)
  - INTERNATIONAL NORMALISED RATIO INCREASED [None]
